FAERS Safety Report 7360017-4 (Version None)
Quarter: 2011Q1

REPORT INFORMATION
  Report Type: 
  Country: None (occurrence: None)
  Receive Date: 20110317
  Receipt Date: 20110314
  Transmission Date: 20110831
  Serious: Yes (Hospitalization)
  Sender: FDA-Public Use
  Company Number: US-ELI_LILLY_AND_COMPANY-US201103004755

PATIENT
  Age: 93 Year
  Sex: Female

DRUGS (10)
  1. MULTI-VITAMIN [Concomitant]
  2. CALTRATE [Concomitant]
  3. LIPITOR [Concomitant]
  4. LOVAZA [Concomitant]
  5. TYLENOL                                 /SCH/ [Concomitant]
     Dosage: UNK, AS NEEDED
  6. ASPIRIN LOW [Concomitant]
  7. CYMBALTA [Suspect]
     Indication: ARTHRITIS
     Dosage: 30 MG, DAILY (1/D)
  8. AMLODIPINE [Concomitant]
  9. VITAMIN D [Concomitant]
  10. ASCORBIC ACID [Concomitant]

REACTIONS (3)
  - DIABETES MELLITUS [None]
  - OFF LABEL USE [None]
  - CARDIAC PACEMAKER INSERTION [None]
